FAERS Safety Report 4889436-2 (Version None)
Quarter: 2006Q1

REPORT INFORMATION
  Report Type: 
  Country: None (occurrence: None)
  Receive Date: 20060120
  Receipt Date: 20060116
  Transmission Date: 20060701
  Serious: Yes (Hospitalization)
  Sender: FDA-Public Use
  Company Number: ITWYE300916JAN06

PATIENT
  Age: 44 Year
  Sex: Male

DRUGS (2)
  1. RAPAMUNE [Suspect]
     Indication: PROPHYLAXIS AGAINST TRANSPLANT REJECTION
     Dosage: ORAL
     Route: 048
     Dates: start: 20051202
  2. CYCLOSPORINWE [Concomitant]

REACTIONS (6)
  - ABDOMINAL PAIN [None]
  - HYPERTENSION [None]
  - KIDNEY ENLARGEMENT [None]
  - KIDNEY TRANSPLANT REJECTION [None]
  - OLIGURIA [None]
  - PYREXIA [None]
